FAERS Safety Report 13180391 (Version 1)
Quarter: 2017Q1

REPORT INFORMATION
  Report Type: Spontaneous
  Country: BE (occurrence: BE)
  Receive Date: 20170202
  Receipt Date: 20170202
  Transmission Date: 20170428
  Serious: Yes (Other)
  Sender: FDA-Public Use
  Company Number: PHHY2017BE013436

PATIENT
  Age: 24 Year
  Sex: Female

DRUGS (13)
  1. OCTREOTIDE, LONG ACTING [Suspect]
     Active Substance: OCTREOTIDE ACETATE
     Indication: INSULINOMA
     Dosage: 30 MG, QMO (LONG-ACTING RELEASE FORM(LAR))
     Route: 065
  2. DIAZOXIDE [Suspect]
     Active Substance: DIAZOXIDE
     Indication: INSULINOMA
     Dosage: 200 MG, QD (2X 100 MG/DAY)
     Route: 065
  3. ACETAZOLAMIDE. [Concomitant]
     Active Substance: ACETAZOLAMIDE
     Indication: OEDEMA
     Route: 065
  4. CISPLATIN. [Concomitant]
     Active Substance: CISPLATIN
     Indication: PRODUCT USED FOR UNKNOWN INDICATION
     Dosage: 80 MG/M2, ON DAY 1
     Route: 065
  5. EVEROLIMUS [Suspect]
     Active Substance: EVEROLIMUS
     Indication: HYPOGLYCAEMIA
     Dosage: 5 MG, QD
     Route: 065
  6. OCTREOTIDE, LONG ACTING [Suspect]
     Active Substance: OCTREOTIDE ACETATE
     Indication: HYPOGLYCAEMIA
  7. OCTREOTIDE. [Suspect]
     Active Substance: OCTREOTIDE
     Indication: HYPOGLYCAEMIA
  8. EVEROLIMUS [Suspect]
     Active Substance: EVEROLIMUS
     Indication: INSULINOMA
     Dosage: 10 MG, QD
     Route: 065
  9. DIAZOXIDE [Suspect]
     Active Substance: DIAZOXIDE
     Indication: HYPOGLYCAEMIA
     Dosage: 100 MG, QD (2X 50 MG/DAY)
     Route: 065
  10. OCTREOTIDE. [Suspect]
     Active Substance: OCTREOTIDE
     Indication: INSULINOMA
     Dosage: 1.5 MG, QD  (3X 0.5 MG) DAY
     Route: 065
  11. DOXORUBICIN [Concomitant]
     Active Substance: DOXORUBICIN
     Indication: HYPOGLYCAEMIA
     Dosage: 50 MG/M2, UNK (BEADS)
     Route: 065
  12. GLUCOSE [Suspect]
     Active Substance: DEXTROSE
     Indication: HYPOGLYCAEMIA
     Route: 065
  13. ETOPOSIDE. [Concomitant]
     Active Substance: ETOPOSIDE
     Indication: PRODUCT USED FOR UNKNOWN INDICATION
     Dosage: 100 MG/M2, ON DAY 1,2,3 Q3W
     Route: 065

REACTIONS (9)
  - Diarrhoea [Unknown]
  - Insulinoma [Unknown]
  - Metastases to lung [Unknown]
  - Drug effect incomplete [Unknown]
  - Hypoglycaemia [Unknown]
  - Flushing [Unknown]
  - Metastases to bone [Unknown]
  - Hypoglycaemic coma [Unknown]
  - Malignant neoplasm progression [Unknown]
